FAERS Safety Report 6539397-5 (Version None)
Quarter: 2010Q1

REPORT INFORMATION
  Report Type: 
  Country: None (occurrence: None)
  Receive Date: 20100111
  Receipt Date: 20091023
  Transmission Date: 20100710
  Serious: Yes (Other)
  Sender: FDA-Public Use
  Company Number: AUR-APL-2009-01137

PATIENT
  Sex: Female

DRUGS (3)
  1. METOPROLOL (GREENSTONE) [Suspect]
     Indication: HYPERTENSION
     Dosage: 50MG, BID
     Dates: start: 20091001
  2. DIOVAN [Concomitant]
  3. INSULIN [Concomitant]

REACTIONS (3)
  - BLOOD GLUCOSE INCREASED [None]
  - BLOOD PRESSURE DIASTOLIC INCREASED [None]
  - DRUG INEFFECTIVE [None]
